FAERS Safety Report 5025542-X (Version None)
Quarter: 2006Q2

REPORT INFORMATION
  Report Type: 
  Country: None (occurrence: None)
  Receive Date: 20060426
  Receipt Date: 20060310
  Transmission Date: 20061013
  Serious: Yes (Other)
  Sender: FDA-Public Use
  Company Number: 2006017911

PATIENT
  Age: 31 Year
  Sex: Female
  Weight: 53.978 kg

DRUGS (9)
  1. LYRICA [Suspect]
     Indication: NEUROPATHY
     Dosage: 50 MG (50 MG, 2 IN 2 D), ORAL
     Route: 048
     Dates: start: 20060101
  2. HORMONAL CONTRACEPTIVES FOR SYSTEMIC USE (HORMONAL CONTRACEPTIVES FORS [Concomitant]
  3. VITAMINS (VITAMINS) [Concomitant]
  4. ZOVIA (ETHINYLESTRADIOL, ETYNODIOL DIACETATE) [Concomitant]
  5. ZYRTEC [Concomitant]
  6. NASONEX [Concomitant]
  7. CALCIUM (CALCIUM) [Concomitant]
  8. VITAMIN B12 [Concomitant]
  9. OPTIVAR (AZELASTINE HYDROCHLORIDE) [Concomitant]

REACTIONS (3)
  - DEPRESSION [None]
  - HEADACHE [None]
  - VISUAL FIELD DEFECT [None]
